FAERS Safety Report 7939819-9 (Version None)
Quarter: 2011Q4

REPORT INFORMATION
  Report Type: 
  Country: None (occurrence: None)
  Receive Date: 20111125
  Receipt Date: 20111122
  Transmission Date: 20120403
  Serious: Yes (Death, Hospitalization)
  Sender: FDA-Public Use
  Company Number: PHEH2011US03296

PATIENT
  Sex: Male

DRUGS (2)
  1. EXJADE [Suspect]
     Dosage: 1375 MG, QD
     Route: 048
  2. VIDAZA [Concomitant]

REACTIONS (3)
  - PNEUMONIA [None]
  - MALAISE [None]
  - MYELODYSPLASTIC SYNDROME [None]
